FAERS Safety Report 9769950 (Version 1)
Quarter: 2013Q4

REPORT INFORMATION
  Report Type: Spontaneous
  Country: US (occurrence: US)
  Receive Date: 20131218
  Receipt Date: 20131218
  Transmission Date: 20140711
  Serious: No
  Sender: FDA-Public Use
  Company Number: US-VERTEX PHARMACEUTICALS INC-AE-2011-001051

PATIENT
  Age: 67 Year
  Sex: Female
  Weight: 86.36 kg

DRUGS (12)
  1. INCIVEK [Suspect]
     Indication: HEPATITIS C
     Route: 048
     Dates: start: 20110818
  2. RIBAVIRIN [Concomitant]
     Indication: HEPATITIS C
     Route: 048
     Dates: start: 20110818
  3. PEGASYS [Concomitant]
     Indication: HEPATITIS C
     Route: 058
     Dates: start: 20110818
  4. LANTUS [Concomitant]
  5. SYMLIN [Concomitant]
  6. LISINOPRIL [Concomitant]
  7. RANEXA [Concomitant]
  8. PLAVIX [Concomitant]
  9. METOPROLOL [Concomitant]
  10. HYDRALAZINE [Concomitant]
  11. CENTRUM VITAMIN [Concomitant]
  12. NITROGLYCERIN PATCH [Concomitant]

REACTIONS (3)
  - Fatigue [Not Recovered/Not Resolved]
  - Vulvovaginal pruritus [Not Recovered/Not Resolved]
  - Vomiting [Recovered/Resolved]
